FAERS Safety Report 4804158-1 (Version None)
Quarter: 2005Q4

REPORT INFORMATION
  Report Type: 
  Country: None (occurrence: None)
  Receive Date: 20051014
  Receipt Date: 20051007
  Transmission Date: 20060501
  Serious: Yes (Other)
  Sender: FDA-Public Use
  Company Number: KII-2005-0018962

PATIENT
  Age: 22 Year
  Sex: Male

DRUGS (1)
  1. OXYCODONE HCL [Suspect]
     Indication: INTENTIONAL DRUG MISUSE
     Dosage: INHALATION
     Route: 055

REACTIONS (6)
  - DRUG ABUSER [None]
  - HYPOAESTHESIA [None]
  - INCORRECT ROUTE OF DRUG ADMINISTRATION [None]
  - MASS [None]
  - RESPIRATORY DISTRESS [None]
  - SENSORY LOSS [None]
